FAERS Safety Report 16987656 (Version 1)
Quarter: 2019Q4

REPORT INFORMATION
  Report Type: Other
  Country: FR (occurrence: FR)
  Receive Date: 20191103
  Receipt Date: 20191103
  Transmission Date: 20200122
  Serious: Yes (Other)
  Sender: FDA-Public Use
  Company Number: FR-DENTSPLY-2019SCDP000585

PATIENT
  Sex: Female

DRUGS (1)
  1. XYLOCAINE WITH ADRENALINE (EPINEPHRINE) [Suspect]
     Active Substance: EPINEPHRINE BITARTRATE\LIDOCAINE HYDROCHLORIDE
     Indication: INCORRECT ROUTE OF PRODUCT ADMINISTRATION
     Dosage: 5 CC, INTRAVENOUS DRIP
     Route: 042
     Dates: start: 20190908, end: 20190908

REACTIONS (2)
  - Incorrect route of product administration [Recovered/Resolved]
  - Tachycardia [Recovered/Resolved]

NARRATIVE: CASE EVENT DATE: 20190908
